FAERS Safety Report 4948879-9 (Version None)
Quarter: 2006Q1

REPORT INFORMATION
  Report Type: 
  Country: None (occurrence: None)
  Receive Date: 20060321
  Receipt Date: 20060309
  Transmission Date: 20060701
  Serious: Yes (Other)
  Sender: FDA-Public Use
  Company Number: GB-AVENTIS-200612624GDDC

PATIENT
  Age: 22 Year
  Sex: Female

DRUGS (5)
  1. ARAVA [Suspect]
     Indication: RHEUMATOID ARTHRITIS
     Dates: start: 20041001, end: 20050523
  2. INDOMETHACIN [Concomitant]
     Indication: RHEUMATOID ARTHRITIS
     Dates: start: 20050407, end: 20050507
  3. OMEPRAZOLE [Concomitant]
     Dosage: DOSE: UNK
  4. CODYDRAMOL [Concomitant]
     Dosage: DOSE: UNK
  5. FLUCONAZOLE [Concomitant]
     Indication: CANDIDIASIS
     Dosage: DOSE: UNK

REACTIONS (5)
  - CAESAREAN SECTION [None]
  - DRUG EXPOSURE DURING PREGNANCY [None]
  - HYPERTENSION [None]
  - PREMATURE LABOUR [None]
  - TWIN PREGNANCY [None]
